FAERS Safety Report 7496400-6 (Version None)
Quarter: 2011Q2

REPORT INFORMATION
  Report Type: 
  Country: None (occurrence: None)
  Receive Date: 20110519
  Receipt Date: 20110519
  Transmission Date: 20111010
  Serious: Yes (Hospitalization)
  Sender: FDA-Public Use
  Company Number: None

PATIENT
  Age: 68 Year
  Sex: Female
  Weight: 74.8435 kg

DRUGS (2)
  1. FORTEO [Suspect]
     Indication: OSTEOPOROSIS
     Dosage: 20 MCG PER DOSE 1 X A DAY
     Dates: start: 20100707, end: 20110101
  2. TRIAD ALCOHOL PADS [Suspect]

REACTIONS (3)
  - BACTERIAL INFECTION [None]
  - WOUND [None]
  - SKIN DISORDER [None]
